FAERS Safety Report 10079184 (Version 2)
Quarter: 2014Q2

REPORT INFORMATION
  Report Type: Spontaneous
  Country: US (occurrence: US)
  Receive Date: 20140415
  Receipt Date: 20140429
  Transmission Date: 20141212
  Serious: Yes (Other)
  Sender: FDA-Public Use
  Company Number: US-PFIZER INC-2014101049

PATIENT
  Age: 66 Year
  Sex: Female
  Weight: 82.99 kg

DRUGS (7)
  1. LIPITOR [Suspect]
     Indication: BLOOD CHOLESTEROL INCREASED
     Dosage: 10 MG, DAILY
     Dates: end: 2013
  2. LIPITOR [Suspect]
     Indication: OVERWEIGHT
  3. MEVACOR [Concomitant]
     Indication: HYPERTENSION
     Dosage: 25 MG, DAILY
  4. ZOLOFT [Concomitant]
     Indication: DEPRESSION
     Dosage: 75 MG, DAILY
  5. ZOLOFT [Concomitant]
     Indication: ANXIETY
  6. PRILOSEC [Concomitant]
     Indication: DYSPEPSIA
     Dosage: UNK
  7. PRILOSEC [Concomitant]
     Indication: GASTROOESOPHAGEAL REFLUX DISEASE

REACTIONS (1)
  - Weight abnormal [Unknown]
